FAERS Safety Report 4693687-X (Version None)
Quarter: 2005Q2

REPORT INFORMATION
  Report Type: 
  Country: None (occurrence: None)
  Receive Date: 20050615
  Receipt Date: 20050527
  Transmission Date: 20051028
  Serious: No
  Sender: FDA-Public Use
  Company Number: USA050599285

PATIENT
  Age: 56 Year
  Sex: Female

DRUGS (4)
  1. CYMBALTA [Suspect]
     Indication: DEPRESSION
     Dosage: 60 MG DAY
     Dates: start: 20050427
  2. METHADONE HCL [Concomitant]
  3. LEXAPRO [Concomitant]
  4. TRANXENE [Concomitant]

REACTIONS (4)
  - CHROMATURIA [None]
  - DIZZINESS [None]
  - HYPERHIDROSIS [None]
  - URINE ABNORMALITY [None]
